FAERS Safety Report 24105833 (Version 3)
Quarter: 2024Q3

REPORT INFORMATION
  Report Type: Spontaneous
  Country: ES (occurrence: ES)
  Receive Date: 20240717
  Receipt Date: 20240904
  Transmission Date: 20241016
  Serious: Yes (Life-Threatening, Hospitalization)
  Sender: AMGEN
  Company Number: ES-AMGEN-ESPSP2024136535

PATIENT

DRUGS (1)
  1. ADALIMUMAB [Suspect]
     Active Substance: ADALIMUMAB
     Indication: Product used for unknown indication
     Dosage: UNK
     Route: 065

REACTIONS (1)
  - COVID-19 pneumonia [Unknown]
